FAERS Safety Report 11767616 (Version 1)
Quarter: 2015Q4

REPORT INFORMATION
  Report Type: Spontaneous
  Country: US (occurrence: US)
  Receive Date: 20151123
  Receipt Date: 20151123
  Transmission Date: 20160304
  Serious: Yes (Other)
  Sender: FDA-Public Use
  Company Number: US-GLAXOSMITHKLINE-US2015GSK165352

PATIENT
  Age: 17 Year
  Sex: Male

DRUGS (4)
  1. DULOXETINE. [Suspect]
     Active Substance: DULOXETINE
     Indication: AFFECTIVE DISORDER
     Dosage: 30 MG, UNK
  2. LAMOTRIGINE. [Suspect]
     Active Substance: LAMOTRIGINE
     Indication: AFFECTIVE DISORDER
     Dosage: 75 MG, QD
  3. BENZOTROPINE [Suspect]
     Active Substance: BENZTROPINE
     Indication: EXTRAPYRAMIDAL DISORDER
     Dosage: 1 MG, UNK
  4. ARIPIPRAZOLE. [Suspect]
     Active Substance: ARIPIPRAZOLE
     Indication: AFFECTIVE DISORDER
     Dosage: 2.5 MG, UNK

REACTIONS (7)
  - Aspartate aminotransferase increased [Recovered/Resolved]
  - Non-alcoholic steatohepatitis [Unknown]
  - Ceruloplasmin decreased [Unknown]
  - Blood copper increased [Unknown]
  - Weight increased [Unknown]
  - Alanine aminotransferase increased [Recovered/Resolved]
  - Hepatic steatosis [Unknown]
